FAERS Safety Report 11573034 (Version 1)
Quarter: 2015Q3

REPORT INFORMATION
  Report Type: Spontaneous
  Country: CZ (occurrence: CZ)
  Receive Date: 20150929
  Receipt Date: 20150929
  Transmission Date: 20151125
  Serious: Yes (Death, Hospitalization)
  Sender: FDA-Public Use
  Company Number: CZ-MYLANLABS-2015M1032556

PATIENT

DRUGS (1)
  1. AZATHIOPRINE. [Suspect]
     Active Substance: AZATHIOPRINE
     Indication: CROHN^S DISEASE
     Dosage: 2.5 MG/KG/DAY
     Route: 065

REACTIONS (4)
  - Renal failure [Unknown]
  - Epstein-Barr virus infection [Fatal]
  - Histiocytosis haematophagic [Fatal]
  - Hepatic failure [Unknown]
